FAERS Safety Report 15034415 (Version 1)
Quarter: 2018Q2

REPORT INFORMATION
  Report Type: Spontaneous
  Country: DE (occurrence: DE)
  Receive Date: 20180620
  Receipt Date: 20180620
  Transmission Date: 20180711
  Serious: Yes (Hospitalization)
  Sender: FDA-Public Use
  Company Number: DE-TEVA-2018-DE-909197

PATIENT
  Age: 79 Year
  Sex: Female

DRUGS (6)
  1. QUETIAPINE. [Suspect]
     Active Substance: QUETIAPINE
     Dosage: 100 MG, 0-0-0-1,
     Route: 048
  2. VALPROINSAEURE [Suspect]
     Active Substance: VALPROIC ACID
     Dosage: 500 MG, 0-0-0-1,
     Route: 048
  3. FELODIPINE. [Concomitant]
     Active Substance: FELODIPINE
     Dosage: 10 MG, 1-0-0-0,
     Route: 048
  4. LEVOTHYROXIN [Concomitant]
     Active Substance: LEVOTHYROXINE
     Dosage: 75 ?G, 1-0-0-0,
     Route: 048
  5. TORASEMID [Concomitant]
     Active Substance: TORSEMIDE
     Dosage: 10 MG, 1-0-0-0,
     Route: 048
  6. CIPRALEX [Suspect]
     Active Substance: ESCITALOPRAM OXALATE
     Dosage: 10 MG, 1-0-0-0,
     Route: 048

REACTIONS (5)
  - Accidental overdose [Unknown]
  - Gait disturbance [Unknown]
  - Hallucination [Unknown]
  - Somnolence [Unknown]
  - Overdose [Unknown]

NARRATIVE: CASE EVENT DATE: 20161006
